FAERS Safety Report 9841616 (Version 1)
Quarter: 2013Q4

REPORT INFORMATION
  Report Type: Spontaneous
  Country: US (occurrence: None)
  Receive Date: 20131219
  Receipt Date: 20131219
  Transmission Date: 20140711
  Serious: Yes (Death)
  Sender: FDA-Public Use
  Company Number: 163-20785-12113125

PATIENT
  Age: 22 Year
  Sex: Male

DRUGS (5)
  1. THALIDOMIDE (THALIDOMIDE) (CAPSULES) [Suspect]
     Indication: EWING^S SARCOMA RECURRENT
     Route: 048
     Dates: start: 20121029
  2. BLOOD (BLOOD AND RELATED PRODUCTS) [Concomitant]
  3. FENIBRATE (FENOBRATE) [Concomitant]
  4. CELEBREX (CELECOXIB) [Concomitant]
  5. ETOPOSIDE (ETOPOSIDE) [Concomitant]

REACTIONS (4)
  - Ewing^s sarcoma metastatic [None]
  - Disease progression [None]
  - Metastases to lung [None]
  - Asthenia [None]
